FAERS Safety Report 25979720 (Version 3)
Quarter: 2025Q4

REPORT INFORMATION
  Report Type: Spontaneous
  Country: AR (occurrence: AR)
  Receive Date: 20251030
  Receipt Date: 20251209
  Transmission Date: 20260118
  Serious: Yes (Other)
  Sender: SANDOZ
  Company Number: AR-SANDOZ-SDZ2025AR027174

PATIENT
  Age: 52 Year
  Sex: Female

DRUGS (1)
  1. HYRIMOZ [Suspect]
     Active Substance: ADALIMUMAB-ADAZ
     Indication: Axial spondyloarthritis
     Dosage: UNK, DOSE:40, FREQUENCY:2, 40MG /0.8ML PREFILLED PENS X 2
     Route: 058
     Dates: start: 20240308, end: 20250220

REACTIONS (6)
  - Bunion operation [Not Recovered/Not Resolved]
  - Joint swelling [Not Recovered/Not Resolved]
  - Gait disturbance [Not Recovered/Not Resolved]
  - Pain [Not Recovered/Not Resolved]
  - Peripheral vein thrombosis [Not Recovered/Not Resolved]
  - Conjunctivitis viral [Not Recovered/Not Resolved]

NARRATIVE: CASE EVENT DATE: 20250220
